FAERS Safety Report 19258662 (Version 2)
Quarter: 2021Q2

REPORT INFORMATION
  Report Type: Report from Study
  Country: CO (occurrence: CO)
  Receive Date: 20210514
  Receipt Date: 20210624
  Transmission Date: 20210717
  Serious: Yes (Other)
  Sender: FDA-Public Use
  Company Number: CO-AMGEN-COLSL2021072476

PATIENT
  Age: 32 Year
  Sex: Female

DRUGS (1)
  1. NPLATE [Suspect]
     Active Substance: ROMIPLOSTIM
     Indication: IMMUNE THROMBOCYTOPENIA
     Dosage: 0.75 MICROGRAM, QWK
     Route: 058
     Dates: start: 20190111, end: 20210421

REACTIONS (1)
  - Maternal exposure during pregnancy [Not Recovered/Not Resolved]
